FAERS Safety Report 7341069-4 (Version None)
Quarter: 2011Q1

REPORT INFORMATION
  Report Type: 
  Country: None (occurrence: None)
  Receive Date: 20110228
  Receipt Date: 20110210
  Transmission Date: 20110831
  Serious: Yes (Other)
  Sender: FDA-Public Use
  Company Number: AUR-APL-2011-00540

PATIENT

DRUGS (3)
  1. VERAPAMIL [Suspect]
  2. DOXAZOSIN MALEATE [Suspect]
  3. METOPROLOL TARTRATE [Suspect]

REACTIONS (3)
  - ATRIAL FIBRILLATION [None]
  - PRODUCT SUBSTITUTION ISSUE [None]
  - BLOOD PRESSURE FLUCTUATION [None]
